FAERS Safety Report 8110508-3 (Version None)
Quarter: 2012Q1

REPORT INFORMATION
  Report Type: 
  Country: None (occurrence: None)
  Receive Date: 20120202
  Receipt Date: 20120124
  Transmission Date: 20120608
  Serious: Yes (Hospitalization)
  Sender: FDA-Public Use
  Company Number: JP-BRISTOL-MYERS SQUIBB COMPANY-16329138

PATIENT
  Age: 45 Year
  Sex: Male
  Weight: 70 kg

DRUGS (5)
  1. TASMOLIN [Concomitant]
     Dosage: TABS
     Dates: start: 20100101, end: 20111113
  2. ZYPREXA [Suspect]
     Indication: AUTISM
     Dosage: UNK-MAR10 REG2, 10MG, MAR10-JUL10 REG3, ORAL, JUL10-JUN11 REG4, 2.5MG, JUN11-13NOV11.TAB
     Route: 048
     Dates: end: 20111113
  3. ABILIFY [Suspect]
     Indication: AUTISM
     Route: 048
     Dates: start: 20100101, end: 20111113
  4. ALPRAZOLAM [Concomitant]
     Dosage: TABS
     Dates: end: 20100901
  5. TEGRETOL [Concomitant]
     Dosage: TABS
     Dates: start: 20100101, end: 20101018

REACTIONS (2)
  - SUPERIOR MESENTERIC ARTERY SYNDROME [None]
  - WEIGHT DECREASED [None]
